FAERS Safety Report 6178274-9 (Version None)
Quarter: 2009Q2

REPORT INFORMATION
  Report Type: 
  Country: None (occurrence: None)
  Receive Date: 20090504
  Receipt Date: 20090421
  Transmission Date: 20091009
  Serious: Yes (Life-Threatening, Other)
  Sender: FDA-Public Use
  Company Number: B0555798A

PATIENT
  Sex: Female
  Weight: 68 kg

DRUGS (1)
  1. CEFUROXIME [Suspect]
     Dosage: 500MG PER DAY
     Route: 065
     Dates: start: 20090112, end: 20090112

REACTIONS (4)
  - ANAPHYLACTIC SHOCK [None]
  - OEDEMA [None]
  - PROTEINURIA [None]
  - URTICARIA [None]
